FAERS Safety Report 11166875 (Version 1)
Quarter: 2015Q2

REPORT INFORMATION
  Report Type: Spontaneous
  Country: US (occurrence: US)
  Receive Date: 20150605
  Receipt Date: 20150605
  Transmission Date: 20150821
  Serious: Yes (Hospitalization)
  Sender: FDA-Public Use
  Company Number: US-JNJFOC-20150515964

PATIENT
  Age: 4 Year
  Sex: Male

DRUGS (2)
  1. CHILDRENS BENADRYL ALLERGY CHERRY FLAVORED [Suspect]
     Active Substance: DIPHENHYDRAMINE HYDROCHLORIDE
     Indication: MULTIPLE ALLERGIES
     Dosage: 3 TABLESPOONS ONCE (DURATION UNSPECIFIED)
     Route: 048
     Dates: start: 20150128
  2. CHILDRENS BENADRYL ALLERGY CHERRY FLAVORED [Suspect]
     Active Substance: DIPHENHYDRAMINE HYDROCHLORIDE
     Indication: ACCIDENTAL EXPOSURE TO PRODUCT
     Dosage: 3 TABLESPOONS ONCE (DURATION UNSPECIFIED)
     Route: 048
     Dates: start: 20150128

REACTIONS (2)
  - Accidental exposure to product by child [Unknown]
  - Failure of child resistant mechanism for pharmaceutical product [Unknown]
